FAERS Safety Report 21540745 (Version 4)
Quarter: 2022Q4

REPORT INFORMATION
  Report Type: Spontaneous
  Country: JP (occurrence: JP)
  Receive Date: 20221102
  Receipt Date: 20221201
  Transmission Date: 20230113
  Serious: Yes (Hospitalization, Other)
  Sender: FDA-Public Use
  Company Number: JP-MYLANLABS-2022M1116654

PATIENT
  Age: 78 Year
  Sex: Male
  Weight: 55 kg

DRUGS (9)
  1. AMLODIPINE MALEATE [Suspect]
     Active Substance: AMLODIPINE MALEATE
     Indication: Hypertension
     Dosage: 1 DOSAGE FORM, TID STARTING 8 WEEKS BEFORE
     Route: 048
  2. AMLODIPINE MALEATE [Suspect]
     Active Substance: AMLODIPINE MALEATE
     Indication: Blood pressure inadequately controlled
  3. DISOPYRAMIDE PHOSPHATE [Suspect]
     Active Substance: DISOPYRAMIDE PHOSPHATE
     Indication: Atrial fibrillation
     Dosage: 50 MILLIGRAM, TID STARTING 2 WEEKS AGO WITH A TOTAL OF 150 MG DAILY
     Route: 048
  4. DISOPYRAMIDE PHOSPHATE [Suspect]
     Active Substance: DISOPYRAMIDE PHOSPHATE
     Dosage: 100 MILLIGRAM, TID INCREASED TO 300 MG TOTAL DAILY 3 DAYS BEFORE
     Route: 048
  5. DONEPEZIL HYDROCHLORIDE [Suspect]
     Active Substance: DONEPEZIL HYDROCHLORIDE
     Indication: Dementia Alzheimer^s type
     Dosage: 1 DOSAGE FORM, QD
     Route: 048
  6. FUROSEMIDE [Suspect]
     Active Substance: FUROSEMIDE
     Indication: Oedema peripheral
     Dosage: 20 MILLIGRAM, QD STARTING 4 WEEKS AGO
     Route: 048
  7. FUROSEMIDE [Suspect]
     Active Substance: FUROSEMIDE
     Dosage: 40 MILLIGRAM, QD 3 DAYS IN ADVANCE
     Route: 048
  8. VERAPAMIL HYDROCHLORIDE [Suspect]
     Active Substance: VERAPAMIL HYDROCHLORIDE
     Indication: Atrial fibrillation
     Dosage: 1 DOSAGE FORM, TID STARTING 3 DAYS BEFORE
     Route: 048
  9. TELMISARTAN [Concomitant]
     Active Substance: TELMISARTAN
     Indication: Hypertension
     Dosage: 1 DOSAGE FORM, QD
     Route: 048

REACTIONS (6)
  - Syncope [Unknown]
  - Long QT syndrome [Recovering/Resolving]
  - Torsade de pointes [Recovering/Resolving]
  - Cardiac failure [Recovering/Resolving]
  - Bradycardia [Unknown]
  - Oedema peripheral [Unknown]
